FAERS Safety Report 8486863-1 (Version None)
Quarter: 2012Q3

REPORT INFORMATION
  Report Type: 
  Country: None (occurrence: None)
  Receive Date: 20120704
  Receipt Date: 20120605
  Transmission Date: 20120928
  Serious: No
  Sender: FDA-Public Use
  Company Number: US-BAYER-2012-057594

PATIENT

DRUGS (2)
  1. ALEVE (CAPLET) [Suspect]
     Indication: TOOTHACHE
     Dosage: 4 DF, UNK
     Route: 048
     Dates: start: 20120605
  2. VICODIN [Concomitant]
     Dosage: 1 DF, UNK
     Dates: start: 20120605

REACTIONS (1)
  - NO ADVERSE EVENT [None]
